FAERS Safety Report 7463924-7 (Version None)
Quarter: 2011Q2

REPORT INFORMATION
  Report Type: 
  Country: None (occurrence: None)
  Receive Date: 20110506
  Receipt Date: 20110427
  Transmission Date: 20111010
  Serious: Yes (Hospitalization)
  Sender: FDA-Public Use
  Company Number: JP-AMGEN-JPNCT2010009639

PATIENT
  Age: 75 Year
  Sex: Male
  Weight: 65 kg

DRUGS (19)
  1. RASENAZOLIN [Concomitant]
     Route: 042
  2. VITAMEDIN [Concomitant]
     Dosage: UNK
     Route: 042
  3. SOLDEM 1 [Concomitant]
     Dosage: UNK
     Route: 042
  4. MEROPENEM [Concomitant]
     Route: 042
  5. CALCICOL [Concomitant]
     Dosage: UNK
     Route: 042
  6. VECTIBIX [Suspect]
     Indication: COLORECTAL CANCER
     Dosage: 6 MG/KG, Q2WK
     Route: 041
     Dates: start: 20100713, end: 20100713
  7. VECTIBIX [Suspect]
     Dosage: 6 MG/KG, Q2WK
     Route: 041
     Dates: start: 20101203, end: 20101217
  8. PARIET [Concomitant]
     Dosage: UNK
     Route: 048
  9. SELOKEN [Concomitant]
     Dosage: UNK
     Route: 048
  10. GLUCOSE [Concomitant]
     Dosage: UNK
     Route: 042
  11. CALONAL [Concomitant]
     Dosage: UNK
     Route: 048
  12. ADALAT CC [Concomitant]
     Dosage: UNK
     Route: 048
  13. GASTER [Concomitant]
     Dosage: UNK
     Route: 042
  14. PENTAZOCINE LACTATE [Concomitant]
     Dosage: UNK
     Route: 048
  15. CEFMETAZOLE [Concomitant]
     Route: 042
  16. HIRUDOID [Concomitant]
     Dosage: UNK
     Route: 062
  17. FULMETA [Concomitant]
     Dosage: UNK
     Route: 062
  18. GASMOTIN [Concomitant]
     Dosage: UNK
     Route: 048
  19. RENIVACE [Concomitant]
     Dosage: UNK
     Route: 048

REACTIONS (5)
  - MALAISE [None]
  - URINARY TRACT INFECTION [None]
  - BLOOD POTASSIUM INCREASED [None]
  - DECREASED APPETITE [None]
  - C-REACTIVE PROTEIN INCREASED [None]
